FAERS Safety Report 4311537-8 (Version None)
Quarter: 2004Q1

REPORT INFORMATION
  Report Type: 
  Country: None (occurrence: None)
  Receive Date: 20040303
  Receipt Date: 20040303
  Transmission Date: 20041129
  Serious: Yes (Life-Threatening, Hospitalization)
  Sender: FDA-Public Use
  Company Number: None

PATIENT
  Age: 71 Year
  Sex: Female

DRUGS (1)
  1. DOCETAXEL [Suspect]
     Indication: NON-SMALL CELL LUNG CANCER
     Dosage: 132 MG ONCE INTRAVENOUS
     Route: 042
     Dates: start: 20031219, end: 20031219

REACTIONS (10)
  - ANAPHYLACTIC REACTION [None]
  - BRADYCARDIA [None]
  - CONVULSION [None]
  - DYSPNOEA [None]
  - ELECTROMECHANICAL DISSOCIATION [None]
  - FLUSHING [None]
  - HYPOTENSION [None]
  - INCONTINENCE [None]
  - LOSS OF CONSCIOUSNESS [None]
  - RESPIRATORY ARREST [None]
